FAERS Safety Report 5125618-2 (Version None)
Quarter: 2006Q4

REPORT INFORMATION
  Report Type: 
  Country: None (occurrence: None)
  Receive Date: 20061006
  Receipt Date: 20060920
  Transmission Date: 20070319
  Serious: Yes (Hospitalization)
  Sender: FDA-Public Use
  Company Number: REM_00240_2006

PATIENT
  Age: 5 Year
  Sex: Female
  Weight: 23.9 kg

DRUGS (9)
  1. REMODULIN [Suspect]
     Indication: PULMONARY HYPERTENSION
     Dosage: 11.25 NG/KG/MIN CONTINUOUS IV
     Route: 042
     Dates: start: 20040714
  2. PREDNISONE TAB [Concomitant]
  3. NORVASC [Concomitant]
  4. TACROLIMUS [Concomitant]
  5. SILDENAFIL [Concomitant]
  6. MULTI-VITAMIN [Concomitant]
  7. TUMS [Concomitant]
  8. BACTRIM [Concomitant]
  9. PREVACID [Concomitant]

REACTIONS (5)
  - ABDOMINAL PAIN UPPER [None]
  - BLOOD CULTURE POSITIVE [None]
  - DECREASED ACTIVITY [None]
  - KLEBSIELLA INFECTION [None]
  - PYREXIA [None]
